FAERS Safety Report 11661995 (Version 1)
Quarter: 2015Q4

REPORT INFORMATION
  Report Type: Spontaneous
  Country: US (occurrence: US)
  Receive Date: 20151026
  Receipt Date: 20151026
  Transmission Date: 20160304
  Serious: No
  Sender: FDA-Public Use
  Company Number: US-ACTELION PHARMACEUTICALS US, INC.-A-US2014-104931

PATIENT
  Age: 29 Year
  Sex: Female

DRUGS (1)
  1. OPSUMIT [Suspect]
     Active Substance: MACITENTAN
     Indication: PULMONARY ARTERIAL HYPERTENSION
     Dosage: 10 MG, QD
     Route: 048
     Dates: start: 20140103

REACTIONS (9)
  - Headache [Not Recovered/Not Resolved]
  - Condition aggravated [Unknown]
  - Malaise [Not Recovered/Not Resolved]
  - Cognitive disorder [Unknown]
  - Dyspnoea exertional [Unknown]
  - Lyme disease [Not Recovered/Not Resolved]
  - Dyspnoea [Unknown]
  - Fatigue [Unknown]
  - Rash [Not Recovered/Not Resolved]

NARRATIVE: CASE EVENT DATE: 201408
